FAERS Safety Report 6956168-6 (Version None)
Quarter: 2010Q3

REPORT INFORMATION
  Report Type: 
  Country: None (occurrence: None)
  Receive Date: 20100830
  Receipt Date: 20100817
  Transmission Date: 20110219
  Serious: Yes (Other)
  Sender: FDA-Public Use
  Company Number: PHHY2010US54582

PATIENT
  Sex: Female

DRUGS (5)
  1. LAMISIL [Suspect]
     Indication: FUNGAL INFECTION
     Dosage: 250 MG, QD
     Route: 048
     Dates: start: 20100609, end: 20100715
  2. VITAMINS [Concomitant]
  3. ALLEGRA [Concomitant]
  4. ZOLOFT [Concomitant]
  5. ORAL CONTRACEPTIVE NOS [Concomitant]

REACTIONS (1)
  - WEIGHT INCREASED [None]
